FAERS Safety Report 20976252 (Version 1)
Quarter: 2022Q2

REPORT INFORMATION
  Report Type: Spontaneous
  Country: JP (occurrence: JP)
  Receive Date: 20220617
  Receipt Date: 20220617
  Transmission Date: 20220721
  Serious: Yes (Other)
  Sender: FDA-Public Use
  Company Number: JP-PFIZER INC-PV202200003209

PATIENT
  Sex: Male

DRUGS (2)
  1. LYRICA [Suspect]
     Active Substance: PREGABALIN
     Dosage: IN THE MORNING AND EVENING
     Route: 048
  2. CALONAL [Suspect]
     Active Substance: ACETAMINOPHEN
     Dosage: IN THE MORNING AND EVENING
     Route: 048

REACTIONS (1)
  - Renal impairment [Unknown]
